FAERS Safety Report 16466391 (Version 1)
Quarter: 2019Q2

REPORT INFORMATION
  Report Type: Spontaneous
  Country: HR (occurrence: HR)
  Receive Date: 20190622
  Receipt Date: 20190622
  Transmission Date: 20190711
  Serious: Yes (Other)
  Sender: FDA-Public Use
  Company Number: HR-ACCORD-134212

PATIENT
  Sex: Male

DRUGS (2)
  1. ELICEA [Suspect]
     Active Substance: ESCITALOPRAM OXALATE
     Dosage: CONSCIOUSNESS DISTURBED, FOAMING AT MOU
     Route: 048
     Dates: start: 20190205, end: 20190205
  2. QUETIAPINE. [Suspect]
     Active Substance: QUETIAPINE
     Dosage: UNSPECIFIED, CONSCIOUSNESS DISTURBED, FOAMING AT MOUTH
     Route: 048
     Dates: start: 20190205, end: 20190205

REACTIONS (5)
  - Intentional overdose [Unknown]
  - Foaming at mouth [Unknown]
  - Suicide attempt [Unknown]
  - Tremor [Unknown]
  - Altered state of consciousness [Unknown]

NARRATIVE: CASE EVENT DATE: 20190205
